FAERS Safety Report 8919559 (Version 2)
Quarter: 2013Q1

REPORT INFORMATION
  Report Type: Spontaneous
  Country: US (occurrence: US)
  Receive Date: 20121121
  Receipt Date: 20130225
  Transmission Date: 20140127
  Serious: No
  Sender: FDA-Public Use
  Company Number: US-VERTEX PHARMACEUTICAL INC.-2012-024851

PATIENT
  Sex: Male
  Weight: 88 kg

DRUGS (3)
  1. INCIVEK [Suspect]
     Indication: HEPATITIS C
     Dosage: 750 MG, TID
     Route: 048
     Dates: start: 20121009
  2. RIBAVIRIN [Suspect]
     Indication: HEPATITIS C
     Dosage: 3 DF, BID
     Dates: start: 20121009
  3. PEGASYS [Suspect]
     Indication: HEPATITIS C
     Dosage: WEEKLY
     Dates: start: 20121009

REACTIONS (5)
  - Otitis media [Unknown]
  - Deafness [Unknown]
  - Eustachian tube dysfunction [Unknown]
  - Ear pain [Not Recovered/Not Resolved]
  - Stomatitis [Not Recovered/Not Resolved]
